FAERS Safety Report 16259256 (Version 1)
Quarter: 2019Q2

REPORT INFORMATION
  Report Type: Spontaneous
  Country: SE (occurrence: SE)
  Receive Date: 20190501
  Receipt Date: 20190501
  Transmission Date: 20190711
  Serious: Yes (Hospitalization)
  Sender: FDA-Public Use
  Company Number: SE-TEVA-2019-SE-1043431

PATIENT
  Sex: Male

DRUGS (5)
  1. CIPRALEX [Concomitant]
     Active Substance: ESCITALOPRAM OXALATE
  2. NOZINAN [Suspect]
     Active Substance: LEVOMEPROMAZINE
     Dosage: ^HIS NORMAL DOSE^ + ^TWO NOZINAN WHICH HE SMASHED AND SMOKED^
     Dates: start: 20160226, end: 20160226
  3. GABAPENTIN. [Concomitant]
     Active Substance: GABAPENTIN
  4. LOPERAMIDE [Suspect]
     Active Substance: LOPERAMIDE
     Route: 048
     Dates: start: 20160227, end: 20160227
  5. LYRICA [Suspect]
     Active Substance: PREGABALIN
     Route: 048
     Dates: start: 20160228, end: 20160228

REACTIONS (6)
  - Restlessness [Unknown]
  - Anxiety [Unknown]
  - Hallucination [Unknown]
  - Intentional self-injury [Unknown]
  - Miosis [Unknown]
  - Intentional overdose [Unknown]

NARRATIVE: CASE EVENT DATE: 20160227
